FAERS Safety Report 14787481 (Version 2)
Quarter: 2018Q2

REPORT INFORMATION
  Report Type: Spontaneous
  Country: JP (occurrence: JP)
  Receive Date: 20180421
  Receipt Date: 20180426
  Transmission Date: 20180711
  Serious: Yes (Other)
  Sender: FDA-Public Use
  Company Number: JP-AMGEN-JPNSP2018054826

PATIENT
  Age: 63 Year
  Sex: Male

DRUGS (5)
  1. MOHRUS [Concomitant]
     Active Substance: KETOPROFEN
     Dosage: 40 MG, UNK
     Route: 062
  2. FERROUS CITRATE NA [Concomitant]
     Active Substance: SODIUM FERROUS CITRATE
     Dosage: 50 MG, UNK
     Route: 048
  3. NITRENDIPINE [Concomitant]
     Active Substance: NITRENDIPINE
     Dosage: 5 MG, UNK
     Route: 048
  4. NESP [Suspect]
     Active Substance: DARBEPOETIN ALFA
     Indication: NEPHROGENIC ANAEMIA
     Dosage: 60 MUG, UNK
     Route: 065
     Dates: start: 2017
  5. FEBURIC [Concomitant]
     Active Substance: FEBUXOSTAT
     Dosage: 20 MG, UNK
     Route: 048

REACTIONS (1)
  - Myelodysplastic syndrome [Unknown]
